FAERS Safety Report 7401500-2 (Version None)
Quarter: 2011Q2

REPORT INFORMATION
  Report Type: 
  Country: None (occurrence: None)
  Receive Date: 20110408
  Receipt Date: 20110405
  Transmission Date: 20111010
  Serious: Yes (Hospitalization)
  Sender: FDA-Public Use
  Company Number: US-SP-2011-02047

PATIENT
  Sex: Male

DRUGS (4)
  1. TUBERSOL [Suspect]
     Indication: TUBERCULIN TEST
     Route: 023
     Dates: start: 20110404, end: 20110404
  2. COREG [Concomitant]
  3. HYDROCHLOROTHIAZIDE [Concomitant]
  4. DIOVAN [Concomitant]

REACTIONS (6)
  - FEELING ABNORMAL [None]
  - DYSPNOEA [None]
  - CHILLS [None]
  - CHEST PAIN [None]
  - BLOOD PRESSURE INCREASED [None]
  - DYSPHONIA [None]
